FAERS Safety Report 12137403 (Version 1)
Quarter: 2016Q1

REPORT INFORMATION
  Report Type: Spontaneous
  Country: US (occurrence: None)
  Receive Date: 20160301
  Receipt Date: 20160301
  Transmission Date: 20160526
  Serious: Yes (Other)
  Sender: FDA-Public Use
  Company Number: None

PATIENT
  Age: 53 Year
  Sex: Female
  Weight: 68.49 kg

DRUGS (4)
  1. CHANTIX [Suspect]
     Active Substance: VARENICLINE TARTRATE
     Indication: SMOKING CESSATION THERAPY
     Route: 048
     Dates: start: 20160215, end: 20160222
  2. BENZTROPINE [Concomitant]
     Active Substance: BENZTROPINE
  3. ZYPREXA [Concomitant]
     Active Substance: OLANZAPINE
  4. FLUVOXAMINE [Concomitant]
     Active Substance: FLUVOXAMINE

REACTIONS (2)
  - Crying [None]
  - Depressed mood [None]

NARRATIVE: CASE EVENT DATE: 20160224
